FAERS Safety Report 8665054 (Version 3)
Quarter: 2012Q4

REPORT INFORMATION
  Report Type: 
  Country: AU (occurrence: AU)
  Receive Date: 20120716
  Receipt Date: 20121029
  Transmission Date: 20130627
  Serious: Yes (Other)
  Sender: FDA-Public Use
  Company Number: AU-009507513-1207AUS000584

PATIENT

DRUGS (2)
  1. TEMODAL [Suspect]
     Route: 048
  2. THERAPEUTIC RADIOPHARMACEUTICAL (UNSPECIFIED) [Suspect]
     Indication: GLIOBLASTOMA MULTIFORME

REACTIONS (2)
  - Disease progression [Unknown]
  - Drug ineffective [Unknown]
